FAERS Safety Report 15459355 (Version 1)
Quarter: 2018Q4

REPORT INFORMATION
  Report Type: Spontaneous
  Country: US (occurrence: US)
  Receive Date: 20181003
  Receipt Date: 20181003
  Transmission Date: 20190204
  Serious: No
  Sender: FDA-Public Use
  Company Number: US-GLAXOSMITHKLINE-US2016200330

PATIENT
  Age: 74 Year
  Sex: Female

DRUGS (1)
  1. TERBINAFINE. [Suspect]
     Active Substance: TERBINAFINE
     Indication: PRODUCT USED FOR UNKNOWN INDICATION
     Dosage: 250 MG, UNK
     Route: 065

REACTIONS (8)
  - Dysgeusia [Unknown]
  - Balance disorder [Unknown]
  - Tremor [Unknown]
  - Hypoaesthesia [Unknown]
  - Food intolerance [Unknown]
  - Paraesthesia [Unknown]
  - Retching [Unknown]
  - Weight decreased [Unknown]
